FAERS Safety Report 9886110 (Version 2)
Quarter: 2014Q1

REPORT INFORMATION
  Report Type: Spontaneous
  Country: JP (occurrence: JP)
  Receive Date: 20140210
  Receipt Date: 20140210
  Transmission Date: 20141002
  Serious: Yes (Life-Threatening)
  Sender: FDA-Public Use
  Company Number: GXKR2005JP04673

PATIENT
  Age: 70 Year
  Sex: Male

DRUGS (2)
  1. FLUOROURACIL [Suspect]
     Indication: METASTASES TO LIVER
     Dosage: 1250 MG/M2, UNK
     Route: 013
  2. WARFARIN [Interacting]
     Indication: MITRAL VALVE REPLACEMENT

REACTIONS (5)
  - Hypocoagulable state [Unknown]
  - Retroperitoneal haematoma [Unknown]
  - Back pain [Unknown]
  - Vomiting [Unknown]
  - Drug interaction [Unknown]
